FAERS Safety Report 8123018-4 (Version None)
Quarter: 2012Q1

REPORT INFORMATION
  Report Type: 
  Country: None (occurrence: None)
  Receive Date: 20120206
  Receipt Date: 20120123
  Transmission Date: 20120608
  Serious: Yes (Hospitalization, Other)
  Sender: FDA-Public Use
  Company Number: 2012MA001020

PATIENT
  Sex: Male

DRUGS (10)
  1. ZYLOPRIM [Concomitant]
  2. LASIX [Concomitant]
  3. PROTONIX [Concomitant]
  4. LEVAQUIN [Concomitant]
  5. LIPITOR [Concomitant]
  6. HYDRALAZINE HCL [Concomitant]
  7. AMIODARONE HCL [Concomitant]
  8. ASPIRIN [Concomitant]
  9. METOLAZONE [Concomitant]
  10. DIGOXIN [Suspect]
     Indication: PRODUCT USED FOR UNKNOWN INDICATION
     Dosage: 0.125 MG;QD;PO
     Route: 048
     Dates: start: 20050201, end: 20080307

REACTIONS (32)
  - VENTRICULAR TACHYCARDIA [None]
  - RENAL FAILURE [None]
  - URINARY TRACT INFECTION [None]
  - OEDEMA PERIPHERAL [None]
  - EJECTION FRACTION DECREASED [None]
  - ERYTHEMA [None]
  - TOXICITY TO VARIOUS AGENTS [None]
  - DYSPNOEA [None]
  - AMNESIA [None]
  - NO THERAPEUTIC RESPONSE [None]
  - BLOOD SODIUM DECREASED [None]
  - DIABETES MELLITUS [None]
  - VENTRICULAR FIBRILLATION [None]
  - CACHEXIA [None]
  - HYPERKALAEMIA [None]
  - CARDIAC FAILURE [None]
  - OEDEMA [None]
  - HYPERLIPIDAEMIA [None]
  - PEDAL PULSE DECREASED [None]
  - HYPONATRAEMIA [None]
  - HYPOTENSION [None]
  - WAIST CIRCUMFERENCE INCREASED [None]
  - CONFUSIONAL STATE [None]
  - ECCHYMOSIS [None]
  - HYPERTENSIVE HEART DISEASE [None]
  - BLOOD POTASSIUM INCREASED [None]
  - ASCITES [None]
  - ASTHENIA [None]
  - ISCHAEMIC CARDIOMYOPATHY [None]
  - DIALYSIS [None]
  - MOBILITY DECREASED [None]
  - CARDIOACTIVE DRUG LEVEL ABOVE THERAPEUTIC [None]
